FAERS Safety Report 9019336 (Version 1)
Quarter: 2013Q1

REPORT INFORMATION
  Report Type: Spontaneous
  Country: IN (occurrence: IN)
  Receive Date: 20130118
  Receipt Date: 20130118
  Transmission Date: 20140127
  Serious: Yes (Death)
  Sender: FDA-Public Use
  Company Number: IN-B.I. PHARMACEUTICALS,INC./RIDGEFIELD-2013-CS-00052IG

PATIENT
  Age: 77 Year
  Sex: 0

DRUGS (1)
  1. PRADAXA [Suspect]

REACTIONS (3)
  - Cardio-respiratory arrest [Fatal]
  - Pneumonia aspiration [Fatal]
  - Sepsis [Fatal]
